FAERS Safety Report 14441240 (Version 1)
Quarter: 2018Q1

REPORT INFORMATION
  Report Type: Report from Study
  Country: US (occurrence: US)
  Receive Date: 20180125
  Receipt Date: 20180125
  Transmission Date: 20180509
  Serious: Yes (Hospitalization)
  Sender: FDA-Public Use
  Company Number: US-JNJFOC-20171122468

PATIENT
  Age: 56 Year
  Sex: Male

DRUGS (1)
  1. RISPERDAL CONSTA [Suspect]
     Active Substance: RISPERIDONE
     Indication: PRODUCT USED FOR UNKNOWN INDICATION
     Route: 065

REACTIONS (7)
  - Wrong technique in product usage process [Unknown]
  - Treatment noncompliance [Unknown]
  - Alcohol problem [Unknown]
  - Malaise [Unknown]
  - Syringe issue [Unknown]
  - Off label use [Unknown]
  - Psychotic symptom [Unknown]

NARRATIVE: CASE EVENT DATE: 20150219
